FAERS Safety Report 7458186-0 (Version None)
Quarter: 2011Q2

REPORT INFORMATION
  Report Type: 
  Country: None (occurrence: None)
  Receive Date: 20110504
  Receipt Date: 20110425
  Transmission Date: 20111010
  Serious: Yes (Other)
  Sender: FDA-Public Use
  Company Number: CN-ASTRAZENECA-2011SE20165

PATIENT
  Age: 50 Year
  Sex: Female

DRUGS (3)
  1. IRESSA [Suspect]
     Indication: OVARIAN CANCER
     Route: 048
     Dates: start: 20110301
  2. IRESSA [Suspect]
     Indication: NON-SMALL CELL LUNG CANCER
     Route: 048
     Dates: start: 20110301
  3. HERBAL NERVE TONIC LIQUID [Concomitant]

REACTIONS (3)
  - OFF LABEL USE [None]
  - HAEMATOCHEZIA [None]
  - HAEMOGLOBIN DECREASED [None]
